FAERS Safety Report 4370281-1 (Version None)
Quarter: 2004Q2

REPORT INFORMATION
  Report Type: 
  Country: None (occurrence: None)
  Receive Date: 20040603
  Receipt Date: 20040405
  Transmission Date: 20050107
  Serious: No
  Sender: FDA-Public Use
  Company Number: US-BRISTOL-MYERS SQUIBB COMPANY-12551214

PATIENT
  Age: 51 Year
  Sex: Female
  Weight: 82 kg

DRUGS (2)
  1. ABILIFY [Suspect]
     Indication: FLASHBACK
     Dosage: START DOSE 10MG, INCREASED TO 15MG, DECREASED ON HER OWN TO 10MG
     Route: 048
     Dates: start: 20040324, end: 20040403
  2. NAVANE [Concomitant]

REACTIONS (4)
  - DYSGEUSIA [None]
  - HALLUCINATION [None]
  - HEADACHE [None]
  - NAUSEA [None]
